FAERS Safety Report 5504809-2 (Version None)
Quarter: 2007Q4

REPORT INFORMATION
  Report Type: 
  Country: None (occurrence: None)
  Receive Date: 20071031
  Receipt Date: 20071031
  Transmission Date: 20080405
  Serious: Yes (Life-Threatening)
  Sender: FDA-Public Use
  Company Number: None

PATIENT
  Age: 42 Year
  Sex: Female
  Weight: 117.9352 kg

DRUGS (1)
  1. BUMPROPION TAB  100 MG   MYLAN PHARMACEUTICALS [Suspect]
     Indication: DEPRESSION
     Dosage: -2- 100 MG PILLS  TWICE A DAY  PO
     Route: 048
     Dates: start: 20070715, end: 20071030

REACTIONS (9)
  - ANGER [None]
  - CRYING [None]
  - DEPRESSION [None]
  - DRUG INEFFECTIVE [None]
  - FATIGUE [None]
  - FRUSTRATION [None]
  - MENTAL DISORDER [None]
  - PANIC REACTION [None]
  - PHARMACEUTICAL PRODUCT COMPLAINT [None]
